FAERS Safety Report 5709956-8 (Version None)
Quarter: 2008Q2

REPORT INFORMATION
  Report Type: 
  Country: None (occurrence: None)
  Receive Date: 20080418
  Receipt Date: 20070629
  Transmission Date: 20081010
  Serious: No
  Sender: FDA-Public Use
  Company Number: US-ASTRAZENECA-2007UW13775

PATIENT
  Age: 35 Year
  Sex: Male
  Weight: 96.4 kg

DRUGS (2)
  1. TOPROL-XL [Suspect]
     Indication: HYPERTENSION
     Route: 048
     Dates: start: 20041230, end: 20070614
  2. TOPROL-XL [Suspect]
     Route: 048

REACTIONS (5)
  - DEPRESSION [None]
  - DIARRHOEA [None]
  - LETHARGY [None]
  - PARAESTHESIA [None]
  - WEIGHT INCREASED [None]
